FAERS Safety Report 4587097-3 (Version None)
Quarter: 2005Q1

REPORT INFORMATION
  Report Type: 
  Country: None (occurrence: None)
  Receive Date: 20050218
  Receipt Date: 20050214
  Transmission Date: 20050727
  Serious: Yes (Hospitalization)
  Sender: FDA-Public Use
  Company Number: GXKR2005US00595

PATIENT
  Age: 53 Year
  Sex: Female

DRUGS (6)
  1. CALCIUM CARBONATE [Concomitant]
     Dosage: 500 MG, BID
  2. VITAMIN D [Concomitant]
     Route: 065
  3. LEFLUNOMIDE [Concomitant]
     Dosage: UNK, QD
  4. PREDNISONE [Concomitant]
     Dosage: UNK, UNK
     Route: 065
  5. ROFECOXIB [Concomitant]
     Dosage: UNK, UNK
     Route: 065
  6. ISONIAZID [Suspect]
     Indication: PROPHYLAXIS
     Dosage: 300 MG, UNK
     Route: 048

REACTIONS (5)
  - ABDOMINAL PAIN UPPER [None]
  - NAUSEA [None]
  - PANCREATITIS [None]
  - PANCREATITIS ACUTE [None]
  - VOMITING [None]
